FAERS Safety Report 6694660-2 (Version None)
Quarter: 2010Q2

REPORT INFORMATION
  Report Type: 
  Country: None (occurrence: None)
  Receive Date: 20100423
  Receipt Date: 20100415
  Transmission Date: 20101027
  Serious: Yes (Disabling)
  Sender: FDA-Public Use
  Company Number: GXKR2010FR01707

PATIENT
  Sex: Male
  Weight: 80 kg

DRUGS (6)
  1. TRAMADOL HCL [Suspect]
     Indication: PAIN
     Dosage: 100 MG, ONCE/SINGLE
     Route: 048
     Dates: start: 20100105, end: 20100105
  2. ZOLPIDEM [Concomitant]
     Indication: SLEEP DISORDER
     Dosage: 10 MG, UNK
     Route: 065
  3. ATENOLOL [Concomitant]
     Dosage: 100 MG, UNK
     Route: 065
  4. PREVISCAN [Concomitant]
     Dosage: 0.75 DF, IN THE EVENING
     Route: 065
  5. DOLIPRANE [Concomitant]
     Indication: PAIN
     Dosage: UNK
     Route: 065
  6. TAHOR [Concomitant]
     Dosage: 10 MG, UNK

REACTIONS (2)
  - DIPLEGIA [None]
  - MUSCULAR WEAKNESS [None]
